FAERS Safety Report 5646960-2 (Version None)
Quarter: 2008Q1

REPORT INFORMATION
  Report Type: 
  Country: None (occurrence: None)
  Receive Date: 20080303
  Receipt Date: 20080222
  Transmission Date: 20080703
  Serious: Yes (Hospitalization)
  Sender: FDA-Public Use
  Company Number: A0706374A

PATIENT
  Age: 78 Year
  Sex: Female
  Weight: 49.1 kg

DRUGS (10)
  1. ADVAIR DISKUS 100/50 [Suspect]
     Indication: CHRONIC OBSTRUCTIVE PULMONARY DISEASE
     Dosage: 1PUFF TWICE PER DAY
     Route: 055
     Dates: start: 20071220
  2. SPIRIVA [Concomitant]
     Indication: CHRONIC OBSTRUCTIVE PULMONARY DISEASE
     Dosage: 1PUFF PER DAY
     Dates: start: 20071220
  3. SIMVASTATIN [Concomitant]
     Dosage: 40MG AT NIGHT
     Route: 048
     Dates: start: 20060101
  4. DIAZEPAM [Concomitant]
     Indication: ANXIETY
     Dosage: 2MG PER DAY
     Route: 048
     Dates: start: 20050101
  5. TOPROL-XL [Concomitant]
     Dosage: 25MG PER DAY
  6. ISOSORBIDE DINITRATE [Concomitant]
     Dosage: 30MG PER DAY
     Dates: start: 20050101
  7. WARFARIN SODIUM [Concomitant]
     Indication: ATRIAL FIBRILLATION
     Dosage: 3MG PER DAY
  8. METHIMAZOLE [Concomitant]
     Dosage: 2.5MG PER DAY
     Dates: start: 20050101
  9. CENTRUM [Concomitant]
     Dates: start: 20050101
  10. CALCIUM + VITAMIN D [Concomitant]
     Indication: OSTEOPOROSIS
     Dates: start: 20050101

REACTIONS (1)
  - PANCREATITIS [None]
